FAERS Safety Report 23955753 (Version 1)
Quarter: 2024Q2

REPORT INFORMATION
  Report Type: Report from Study
  Country: US (occurrence: US)
  Receive Date: 20240610
  Receipt Date: 20240610
  Transmission Date: 20240716
  Serious: Yes (Hospitalization)
  Sender: FDA-Public Use
  Company Number: US-TEVA-VS-3204316

PATIENT
  Age: 78 Year
  Sex: Female

DRUGS (1)
  1. AUSTEDO [Suspect]
     Active Substance: DEUTETRABENAZINE
     Indication: Tardive dyskinesia
     Route: 048
     Dates: start: 20240206

REACTIONS (17)
  - Malaise [Unknown]
  - Confusional state [Unknown]
  - Visual impairment [Unknown]
  - Stress [Unknown]
  - Gait disturbance [Unknown]
  - Speech disorder [Unknown]
  - Grip strength decreased [Unknown]
  - Back pain [Unknown]
  - Fatigue [Unknown]
  - Impaired driving ability [Unknown]
  - Memory impairment [Unknown]
  - Abdominal pain [Unknown]
  - Insomnia [Unknown]
  - General physical health deterioration [Unknown]
  - Cough [Unknown]
  - Joint noise [Unknown]
  - Therapeutic product effect decreased [Unknown]

NARRATIVE: CASE EVENT DATE: 20240201
